FAERS Safety Report 8362979-5 (Version None)
Quarter: 2012Q2

REPORT INFORMATION
  Report Type: 
  Country: None (occurrence: None)
  Receive Date: 20120516
  Receipt Date: 20110919
  Transmission Date: 20120825
  Serious: No
  Sender: FDA-Public Use
  Company Number: US-ALEXION-A201101432

PATIENT
  Sex: Female
  Weight: 55.3 kg

DRUGS (4)
  1. IRON [Concomitant]
     Dosage: UNK
     Dates: start: 20000101
  2. SOLIRIS [Suspect]
     Indication: PAROXYSMAL NOCTURNAL HAEMOGLOBINURIA
     Dosage: 1200 MG Q2W
     Route: 042
     Dates: start: 20101007
  3. SOLIRIS [Suspect]
     Dosage: 900 MG Q2W
     Route: 042
     Dates: start: 20110112
  4. FOLIC ACID [Concomitant]
     Dosage: UNK
     Dates: start: 20000101

REACTIONS (1)
  - NECK PAIN [None]
